FAERS Safety Report 13083614 (Version 5)
Quarter: 2017Q3

REPORT INFORMATION
  Report Type: Report from Study
  Country: CA (occurrence: CA)
  Receive Date: 20170104
  Receipt Date: 20170810
  Transmission Date: 20171127
  Serious: Yes (Hospitalization, Other)
  Sender: FDA-Public Use
  Company Number: CA-AMGEN-CANSL2016185230

PATIENT
  Age: 70 Year
  Sex: Female

DRUGS (11)
  1. CLOPIDOGREL [Concomitant]
     Active Substance: CLOPIDOGREL BISULFATE
  2. REPATHA [Suspect]
     Active Substance: EVOLOCUMAB
     Indication: HYPERCHOLESTEROLAEMIA
     Dosage: 140 MG/ML, UNK
     Route: 065
     Dates: start: 20161218, end: 201702
  3. REPATHA [Suspect]
     Active Substance: EVOLOCUMAB
     Dosage: 140 MG/ML, UNK
     Route: 065
     Dates: start: 201704
  4. TELMISARTAN. [Concomitant]
     Active Substance: TELMISARTAN
  5. HCTZ [Concomitant]
     Active Substance: HYDROCHLOROTHIAZIDE
  6. COQ10 [Concomitant]
     Active Substance: UBIDECARENONE
  7. TRAZODONE [Concomitant]
     Active Substance: TRAZODONE HYDROCHLORIDE
  8. OMEGA 3 [Concomitant]
     Active Substance: OMEGA-3 FATTY ACIDS
  9. VITAMIN C [Concomitant]
     Active Substance: ASCORBIC ACID
  10. PANTOPRAZOLE [Concomitant]
     Active Substance: PANTOPRAZOLE
  11. LYSINE [Concomitant]
     Active Substance: LYSINE

REACTIONS (17)
  - Vertigo [Unknown]
  - Sneezing [Unknown]
  - Malaise [Recovered/Resolved]
  - Asthenia [Recovered/Resolved]
  - Depression [Unknown]
  - Fatigue [Not Recovered/Not Resolved]
  - Muscle tightness [Unknown]
  - Hyperhidrosis [Unknown]
  - Back pain [Unknown]
  - Sinus disorder [Unknown]
  - Feeling abnormal [Unknown]
  - Chills [Unknown]
  - Somnolence [Unknown]
  - Loss of personal independence in daily activities [Unknown]
  - Lethargy [Unknown]
  - Myalgia [Unknown]
  - Abdominal discomfort [Not Recovered/Not Resolved]

NARRATIVE: CASE EVENT DATE: 201612
